FAERS Safety Report 20405242 (Version 2)
Quarter: 2022Q1

REPORT INFORMATION
  Report Type: Spontaneous
  Country: CN (occurrence: None)
  Receive Date: 20220131
  Receipt Date: 20220204
  Transmission Date: 20220423
  Serious: Yes (Hospitalization)
  Sender: FDA-Public Use
  Company Number: 2022A044800

PATIENT
  Age: 70 Year
  Sex: Female

DRUGS (3)
  1. SYMBICORT [Suspect]
     Active Substance: BUDESONIDE\FORMOTEROL FUMARATE DIHYDRATE
     Dosage: 60 INHALATIONS, HALF A BOTTLE, UNKNOWN FREQUENCY UNKNOWN
     Route: 055
     Dates: start: 2021
  2. SYMBICORT [Suspect]
     Active Substance: BUDESONIDE\FORMOTEROL FUMARATE DIHYDRATE
     Dosage: TWO TIMES A DAY, ONCE IN THE MORNING AND ONCE IN THE EVENING, DOSE UNKNOWN UNKNOWN
     Route: 055
  3. OXYGEN [Concomitant]
     Active Substance: OXYGEN

REACTIONS (12)
  - Asthma [Unknown]
  - Chronic obstructive pulmonary disease [Unknown]
  - Emphysema [Unknown]
  - Pneumonia [Unknown]
  - Dry throat [Not Recovered/Not Resolved]
  - Cardiac discomfort [Not Recovered/Not Resolved]
  - Discomfort [Unknown]
  - Heart rate increased [Not Recovered/Not Resolved]
  - Angina pectoris [Not Recovered/Not Resolved]
  - Aphonia [Not Recovered/Not Resolved]
  - Incorrect dose administered by device [Unknown]
  - Device issue [Unknown]
